FAERS Safety Report 17910024 (Version 1)
Quarter: 2020Q2

REPORT INFORMATION
  Report Type: Report from Study
  Country: CA (occurrence: CA)
  Receive Date: 20200617
  Receipt Date: 20200617
  Transmission Date: 20200714
  Serious: Yes (Death)
  Sender: FDA-Public Use
  Company Number: CA-ACTELION-A-US2019-188235

PATIENT
  Age: 78 Year
  Sex: Female

DRUGS (13)
  1. SYNTHROID [Concomitant]
     Active Substance: LEVOTHYROXINE SODIUM
  2. WARFARIN [Concomitant]
     Active Substance: WARFARIN
  3. MOXIFLOXACIN. [Concomitant]
     Active Substance: MOXIFLOXACIN
     Dosage: UNK, PRN
  4. VENTOLIN HFA [Concomitant]
     Active Substance: ALBUTEROL SULFATE
  5. OXYGEN. [Concomitant]
     Active Substance: OXYGEN
  6. HYDROXYUREA. [Concomitant]
     Active Substance: HYDROXYUREA
  7. MIRTAZAPINE. [Concomitant]
     Active Substance: MIRTAZAPINE
  8. ULTIBRO [Concomitant]
     Active Substance: GLYCOPYRRONIUM\INDACATEROL
  9. FUROSEMIDE. [Concomitant]
     Active Substance: FUROSEMIDE
  10. PULMICORT TURBUHALER [Concomitant]
     Active Substance: BUDESONIDE
  11. TRACLEER [Suspect]
     Active Substance: BOSENTAN
     Indication: PULMONARY ARTERIAL HYPERTENSION
     Dosage: 125 MG, BID
     Route: 048
     Dates: start: 20161024
  12. ATORVASTATIN [Concomitant]
     Active Substance: ATORVASTATIN
  13. PREDNISONE. [Concomitant]
     Active Substance: PREDNISONE
     Dosage: UNK, PRN

REACTIONS (7)
  - Full blood count abnormal [Recovered/Resolved]
  - Malaise [Unknown]
  - Condition aggravated [Unknown]
  - Death [Fatal]
  - Dyspnoea [Unknown]
  - Product dose omission [Recovered/Resolved]
  - Stress [Not Recovered/Not Resolved]

NARRATIVE: CASE EVENT DATE: 201902
